FAERS Safety Report 6016763-8 (Version None)
Quarter: 2008Q4

REPORT INFORMATION
  Report Type: 
  Country: None (occurrence: None)
  Receive Date: 20081222
  Receipt Date: 20080820
  Transmission Date: 20090506
  Serious: No
  Sender: FDA-Public Use
  Company Number: US-B.I. PHARMACEUTICALS,INC./RIDGEFIELD-2008-BP-13474BP

PATIENT

DRUGS (1)
  1. FLOMAX [Suspect]

REACTIONS (3)
  - FACE OEDEMA [None]
  - OEDEMA [None]
  - OEDEMA PERIPHERAL [None]
